FAERS Safety Report 13958903 (Version 1)
Quarter: 2017Q3

REPORT INFORMATION
  Report Type: Spontaneous
  Country: US (occurrence: US)
  Receive Date: 20170911
  Receipt Date: 20170911
  Transmission Date: 20171128
  Serious: No
  Sender: FDA-Public Use
  Company Number: US-BIOMARINAP-US-2017-115300

PATIENT
  Age: 15 Year
  Sex: Male
  Weight: 47 kg

DRUGS (1)
  1. NAGLAZYME [Suspect]
     Active Substance: GALSULFASE
     Indication: MUCOPOLYSACCHARIDOSIS VI
     Dosage: 50 MG, QW
     Route: 042

REACTIONS (1)
  - Miliaria [Unknown]

NARRATIVE: CASE EVENT DATE: 20170901
